FAERS Safety Report 8456994 (Version 3)
Quarter: 2012Q4

REPORT INFORMATION
  Report Type: 
  Country: FR (occurrence: FR)
  Receive Date: 20120313
  Receipt Date: 20121214
  Transmission Date: 20130627
  Serious: Yes (Hospitalization, Other)
  Sender: FDA-Public Use
  Company Number: PHHY2012FR019800

PATIENT
  Sex: Male

DRUGS (9)
  1. LESCOL [Suspect]
  2. BACTRIM [Suspect]
     Indication: PNEUMOCYSTIS JIROVECI PNEUMONIA
     Dates: start: 20120114, end: 20120116
  3. INIPOMP [Concomitant]
     Dosage: 2 DF
     Route: 048
     Dates: end: 20120114
  4. SEVIKAR [Concomitant]
     Route: 048
     Dates: end: 20120114
  5. GAVISCON [Concomitant]
     Route: 048
     Dates: end: 20120114
  6. PANTOPRAZOLE [Concomitant]
  7. ANGIOTENSIN II ANTAGONISTS [Concomitant]
  8. VENTOLINE [Concomitant]
     Indication: DYSPNOEA
     Dates: end: 20120114
  9. AMLODIPINE [Concomitant]
     Route: 048

REACTIONS (8)
  - Eosinophilic pneumonia [Recovered/Resolved]
  - Acute respiratory distress syndrome [Recovered/Resolved]
  - Respiratory failure [Unknown]
  - Hypoxia [Recovered/Resolved]
  - Dyspnoea [Recovered/Resolved]
  - Cough [Recovered/Resolved]
  - Renal failure acute [Unknown]
  - Thrombocytopenia [Unknown]
